FAERS Safety Report 6220262-8 (Version None)
Quarter: 2009Q2

REPORT INFORMATION
  Report Type: 
  Country: None (occurrence: None)
  Receive Date: 20090605
  Receipt Date: 20090526
  Transmission Date: 20091009
  Serious: Yes (Disabling)
  Sender: FDA-Public Use
  Company Number: 2009-195806-NL

PATIENT
  Age: 26 Year
  Sex: Female

DRUGS (2)
  1. ETONOGESTREL [Suspect]
     Indication: CONTRACEPTION
     Dosage: DF SUBDERMAL 2 YEARS 38 WEEKS 6 DAYS
     Route: 059
     Dates: start: 20060601, end: 20090226
  2. DESOGESTREL AND ETHINYL ESTRADIOL [Concomitant]

REACTIONS (3)
  - METASTASES TO LYMPH NODES [None]
  - SQUAMOUS CELL CARCINOMA OF THE CERVIX [None]
  - VAGINAL HAEMORRHAGE [None]
